FAERS Safety Report 6187448-2 (Version None)
Quarter: 2009Q2

REPORT INFORMATION
  Report Type: 
  Country: None (occurrence: None)
  Receive Date: 20090512
  Receipt Date: 20090508
  Transmission Date: 20091009
  Serious: Yes (Disabling, Other)
  Sender: FDA-Public Use
  Company Number: US-MERCK-0904USA01531

PATIENT
  Age: 47 Year
  Sex: Female
  Weight: 105 kg

DRUGS (6)
  1. SINGULAIR [Suspect]
     Indication: ASTHMA
     Route: 048
     Dates: start: 20080602, end: 20090101
  2. SINGULAIR [Suspect]
     Indication: HYPERSENSITIVITY
     Route: 048
     Dates: start: 20080602, end: 20090101
  3. ALLEGRA [Concomitant]
     Route: 065
     Dates: start: 20090101
  4. CELEXA [Concomitant]
     Route: 065
  5. WELLBUTRIN [Concomitant]
     Indication: DEPRESSION
     Route: 048
     Dates: start: 20090325
  6. CYMBALTA [Concomitant]
     Indication: DEPRESSION
     Route: 048
     Dates: start: 20090206, end: 20090325

REACTIONS (5)
  - ANXIETY [None]
  - DEPRESSION [None]
  - MUSCULOSKELETAL CHEST PAIN [None]
  - PALPITATIONS [None]
  - SUICIDAL IDEATION [None]
